FAERS Safety Report 12650890 (Version 1)
Quarter: 2016Q3

REPORT INFORMATION
  Report Type: Spontaneous
  Country: US (occurrence: US)
  Receive Date: 20160815
  Receipt Date: 20160815
  Transmission Date: 20161109
  Serious: No
  Sender: FDA-Public Use
  Company Number: US-JAZZ-2016-US-004767

PATIENT
  Sex: Female

DRUGS (9)
  1. XYREM [Suspect]
     Active Substance: SODIUM OXYBATE
     Dosage: DOSE ADJUSTMENTS
     Route: 048
  2. ATENOLOL. [Concomitant]
     Active Substance: ATENOLOL
  3. XYREM [Suspect]
     Active Substance: SODIUM OXYBATE
     Indication: NARCOLEPSY
     Dosage: 2.25 G, BID
     Route: 048
     Dates: start: 201511, end: 201511
  4. NUVIGIL [Suspect]
     Active Substance: ARMODAFINIL
     Indication: PRODUCT USED FOR UNKNOWN INDICATION
     Dosage: 250 MG
     Dates: start: 20151222, end: 20160415
  5. LEXAPRO [Concomitant]
     Active Substance: ESCITALOPRAM OXALATE
  6. LOMEDIA 24 FE [Concomitant]
     Active Substance: ETHINYL ESTRADIOL\NORETHINDRONE ACETATE
  7. MACRODANTIN [Concomitant]
     Active Substance: NITROFURANTOIN
  8. XYREM [Suspect]
     Active Substance: SODIUM OXYBATE
     Dosage: 4.5 G, BID
     Route: 048
     Dates: start: 201512
  9. SAPHRIS [Concomitant]
     Active Substance: ASENAPINE MALEATE

REACTIONS (5)
  - Pre-existing condition improved [Unknown]
  - Therapeutic response unexpected [Unknown]
  - Stress [Not Recovered/Not Resolved]
  - Post-traumatic stress disorder [Unknown]
  - Drug ineffective [Unknown]
